FAERS Safety Report 7170075-8 (Version None)
Quarter: 2010Q4

REPORT INFORMATION
  Report Type: 
  Country: None (occurrence: None)
  Receive Date: 20101123
  Receipt Date: 20100816
  Transmission Date: 20110411
  Serious: No
  Sender: FDA-Public Use
  Company Number: 017280

PATIENT
  Sex: Female

DRUGS (3)
  1. CIMZIA [Suspect]
     Indication: CROHN'S DISEASE
     Dosage: (200 MG IN RIGHT THIGH SUBCUTANEOUS) ; (200 MG IN LEFT THIGH SUBCUTANEOUS)
     Route: 058
     Dates: start: 20100617
  2. CIMZIA [Suspect]
     Indication: CROHN'S DISEASE
     Dosage: (200 MG IN RIGHT THIGH SUBCUTANEOUS) ; (200 MG IN LEFT THIGH SUBCUTANEOUS)
     Route: 058
     Dates: start: 20100617
  3. CIMZIA [Suspect]

REACTIONS (1)
  - INFREQUENT BOWEL MOVEMENTS [None]
